FAERS Safety Report 12846946 (Version 1)
Quarter: 2016Q4

REPORT INFORMATION
  Report Type: Spontaneous
  Country: AU (occurrence: AU)
  Receive Date: 20161014
  Receipt Date: 20161014
  Transmission Date: 20170207
  Serious: Yes (Hospitalization, Other)
  Sender: FDA-Public Use
  Company Number: PHHY2016AU138310

PATIENT
  Age: 78 Year
  Sex: Male

DRUGS (2)
  1. MEKINIST [Suspect]
     Active Substance: TRAMETINIB DIMETHYL SULFOXIDE
     Indication: PRODUCT USED FOR UNKNOWN INDICATION
     Dosage: UNK
     Route: 065
     Dates: start: 20160810, end: 20160813
  2. TAFINLAR [Suspect]
     Active Substance: DABRAFENIB MESYLATE
     Indication: PRODUCT USED FOR UNKNOWN INDICATION
     Dosage: UNK
     Route: 065
     Dates: start: 20160810, end: 20160813

REACTIONS (11)
  - Malaise [Unknown]
  - Swollen tongue [Unknown]
  - Rash papular [Unknown]
  - Rash [Unknown]
  - Hypersensitivity [Unknown]
  - Liver function test increased [Unknown]
  - Pyrexia [Unknown]
  - Metastases to lung [Unknown]
  - Peripheral swelling [Unknown]
  - Pruritus [Unknown]
  - Metastases to central nervous system [Unknown]
